FAERS Safety Report 4957372-9 (Version None)
Quarter: 2006Q1

REPORT INFORMATION
  Report Type: 
  Country: None (occurrence: None)
  Receive Date: 20060324
  Receipt Date: 20060315
  Transmission Date: 20060701
  Serious: Yes (Other)
  Sender: FDA-Public Use
  Company Number: HQWYE358916MAR06

PATIENT
  Age: 45 Year
  Sex: Female
  Weight: 45.4 kg

DRUGS (6)
  1. PREMARIN [Suspect]
     Indication: OESTROGEN REPLACEMENT THERAPY
     Dosage: ORAL
     Route: 048
     Dates: start: 20041001, end: 20041201
  2. PREMARIN [Suspect]
     Indication: OESTROGEN REPLACEMENT THERAPY
     Dosage: ORAL
     Route: 048
     Dates: start: 20041201, end: 20050901
  3. PREMARIN [Suspect]
     Indication: OESTROGEN REPLACEMENT THERAPY
     Dosage: ORAL
     Route: 048
     Dates: start: 20050901, end: 20060301
  4. PREMARIN [Suspect]
     Indication: OESTROGEN REPLACEMENT THERAPY
     Dosage: ORAL
     Route: 048
     Dates: start: 20060301
  5. PROGESTERONE [Concomitant]
  6. CLONAZEPAM [Concomitant]

REACTIONS (4)
  - DRUG INEFFECTIVE [None]
  - HAIR GROWTH ABNORMAL [None]
  - INSOMNIA [None]
  - UTERINE LEIOMYOMA [None]
